FAERS Safety Report 17182417 (Version 1)
Quarter: 2019Q4

REPORT INFORMATION
  Report Type: Spontaneous
  Country: DE (occurrence: DE)
  Receive Date: 20191220
  Receipt Date: 20191220
  Transmission Date: 20200122
  Serious: Yes (Hospitalization)
  Sender: FDA-Public Use
  Company Number: DE-ROCHE-2496739

PATIENT
  Age: 69 Year
  Sex: Male
  Weight: 68 kg

DRUGS (12)
  1. FOLSAN [Concomitant]
     Active Substance: FOLIC ACID
     Dosage: 0.4 MG, 1-0-0-0, TABLETTEN
     Route: 048
  2. XARELTO [Concomitant]
     Active Substance: RIVAROXABAN
     Dosage: 10 MG, 1-0-0-0, TABLETTEN
     Route: 048
  3. PANTOPRAZOLE [Concomitant]
     Active Substance: PANTOPRAZOLE
     Dosage: 40 MG, 1-0-0-0, TABLETTEN
     Route: 048
  4. METOCLOPRAMIDE. [Concomitant]
     Active Substance: METOCLOPRAMIDE
     Dosage: 10 MG, 1-1-1-0, TABLETTEN
     Route: 048
  5. PEMETREXED. [Suspect]
     Active Substance: PEMETREXED
     Indication: PRODUCT USED FOR UNKNOWN INDICATION
     Dosage: RECENT DOSE 06/APR/2018
     Route: 042
  6. MOVICOL [Concomitant]
     Active Substance: POLYETHYLENE GLYCOL 3350\POTASSIUM CHLORIDE\SODIUM BICARBONATE\SODIUM CHLORIDE
     Dosage: 0-1-0-0, BEUTEL
     Route: 048
  7. BEVACIZUMAB. [Suspect]
     Active Substance: BEVACIZUMAB
     Indication: PRODUCT USED FOR UNKNOWN INDICATION
     Dosage: RECENT DOSE 06/APR/2018
     Route: 042
  8. DEXAMETHASONE. [Concomitant]
     Active Substance: DEXAMETHASONE
     Dosage: 4 MG, 1-0-1-0, NACH SCHEMA, TABLETTEN
     Route: 048
  9. MORPHINE [Concomitant]
     Active Substance: MORPHINE
     Route: 048
  10. MORPHINE [Concomitant]
     Active Substance: MORPHINE
     Route: 048
  11. CYANOCOBALAMIN. [Concomitant]
     Active Substance: CYANOCOBALAMIN
     Route: 042
  12. ONDANSETRON [Concomitant]
     Active Substance: ONDANSETRON
     Dosage: 8 MG, 1-0-1-0, TABLETTEN
     Route: 048

REACTIONS (7)
  - Apathy [Unknown]
  - General physical health deterioration [Unknown]
  - Off label use [Unknown]
  - Bradyphrenia [Unknown]
  - Epistaxis [Unknown]
  - Pyrexia [Unknown]
  - Confusional state [Unknown]
